FAERS Safety Report 12330937 (Version 1)
Quarter: 2016Q2

REPORT INFORMATION
  Report Type: Spontaneous
  Country: US (occurrence: US)
  Receive Date: 20160504
  Receipt Date: 20160504
  Transmission Date: 20160815
  Serious: No
  Sender: FDA-Public Use
  Company Number: US-SHIRE-US201604331

PATIENT
  Sex: Female
  Weight: 56.69 kg

DRUGS (2)
  1. GATTEX [Suspect]
     Active Substance: TEDUGLUTIDE\WATER
     Indication: SHORT-BOWEL SYNDROME
     Dosage: 0.28 ML, 1X/DAY:QD
     Route: 058
     Dates: start: 20160331
  2. TPN [Concomitant]
     Active Substance: AMINO ACIDS\DEXTROSE\ELECTROLYTES NOS\SOYBEAN OIL
     Indication: PRODUCT USED FOR UNKNOWN INDICATION
     Dosage: UNK, 5 DAYS WEEKLY
     Route: 042

REACTIONS (2)
  - Stoma site erythema [Unknown]
  - Stoma site reaction [Unknown]

NARRATIVE: CASE EVENT DATE: 2016
